FAERS Safety Report 4993467-1 (Version None)
Quarter: 2006Q2

REPORT INFORMATION
  Report Type: 
  Country: None (occurrence: None)
  Receive Date: 20060505
  Receipt Date: 20060425
  Transmission Date: 20061013
  Serious: Yes (Hospitalization)
  Sender: FDA-Public Use
  Company Number: JP-BRISTOL-MYERS SQUIBB COMPANY-13358270

PATIENT
  Age: 82 Year
  Sex: Male

DRUGS (8)
  1. MAXIPIME [Suspect]
     Indication: SEPSIS
     Dosage: 4/12/06 - 4/13/06 1 GRAM/DAY, 4/14/06 - 4/17/06 2 GRAM X 2/DAY, 4/18/06 1 GRAM X2/DAY
     Route: 041
     Dates: start: 20060412, end: 20060418
  2. LACTEC [Concomitant]
     Route: 041
     Dates: start: 20060412, end: 20060414
  3. AMINOFLUID [Concomitant]
     Dosage: 1000 ML/DAY 4/12/06 THEN 500 ML/DAY 4/13/06-4/18/06
     Route: 041
     Dates: start: 20060412, end: 20060418
  4. SOLITA-T [Concomitant]
     Dosage: 1000 ML/DAY 4/12/06 THEN 500 ML/DAY 4/13/06-4/18/06
     Route: 041
     Dates: start: 20060412, end: 20060418
  5. FESIN [Concomitant]
     Route: 042
     Dates: start: 20060413, end: 20060415
  6. PREDOPA [Concomitant]
     Route: 042
     Dates: start: 20060413, end: 20060416
  7. LASIX [Concomitant]
     Route: 042
     Dates: start: 20060412, end: 20060412
  8. FLIVAS [Concomitant]
     Route: 048
     Dates: start: 20060411

REACTIONS (1)
  - HICCUPS [None]
